FAERS Safety Report 22628146 (Version 1)
Quarter: 2023Q2

REPORT INFORMATION
  Report Type: Spontaneous
  Country: GB (occurrence: GB)
  Receive Date: 20230622
  Receipt Date: 20230622
  Transmission Date: 20230722
  Serious: Yes (Hospitalization, Other)
  Sender: FDA-Public Use
  Company Number: GB-AJANTA-2023AJA00141

PATIENT
  Age: 30 Year
  Sex: Female

DRUGS (10)
  1. CLONIDINE HYDROCHLORIDE [Suspect]
     Active Substance: CLONIDINE HYDROCHLORIDE
     Indication: Agitation
  2. PREGABALIN [Concomitant]
     Active Substance: PREGABALIN
     Indication: Neuralgia
  3. Immunoglobulin [Concomitant]
     Indication: Guillain-Barre syndrome
     Route: 042
  4. MIDAZOLAM [Concomitant]
     Active Substance: MIDAZOLAM
     Indication: Agitation
  5. MIDAZOLAM [Concomitant]
     Active Substance: MIDAZOLAM
  6. ZOPICLONE [Concomitant]
     Active Substance: ZOPICLONE
     Indication: Agitation
  7. ZOPICLONE [Concomitant]
     Active Substance: ZOPICLONE
  8. AMITRIPTYLINE [Concomitant]
     Active Substance: AMITRIPTYLINE
     Indication: Agitation
  9. AMITRIPTYLINE [Concomitant]
     Active Substance: AMITRIPTYLINE
  10. VITAMIN D [Concomitant]
     Active Substance: VITAMIN D NOS
     Indication: Vitamin D deficiency

REACTIONS (2)
  - Brain injury [Unknown]
  - Hypotension [Recovered/Resolved]
